FAERS Safety Report 5022043-X (Version None)
Quarter: 2006Q2

REPORT INFORMATION
  Report Type: 
  Country: None (occurrence: None)
  Receive Date: 20060605
  Receipt Date: 20060523
  Transmission Date: 20061013
  Serious: Yes (Hospitalization)
  Sender: FDA-Public Use
  Company Number: 2006066732

PATIENT
  Age: 75 Year
  Sex: Female

DRUGS (1)
  1. LIPITOR [Suspect]
     Indication: CORONARY ARTERY SURGERY
     Dosage: 80 MG (80 MG, DAILY), ORAL
     Route: 048
     Dates: start: 20050504, end: 20060512

REACTIONS (7)
  - BLOOD CREATINE PHOSPHOKINASE INCREASED [None]
  - BLOOD TEST ABNORMAL [None]
  - DRUG INEFFECTIVE [None]
  - FATIGUE [None]
  - MUSCLE DISORDER [None]
  - PAIN IN EXTREMITY [None]
  - RENAL FAILURE [None]
